FAERS Safety Report 21209682 (Version 3)
Quarter: 2022Q3

REPORT INFORMATION
  Report Type: Spontaneous
  Country: US (occurrence: US)
  Receive Date: 20220813
  Receipt Date: 20220924
  Transmission Date: 20221027
  Serious: No
  Sender: FDA-Public Use
  Company Number: US-JNJFOC-20220824964

PATIENT
  Age: 48 Year
  Sex: Male
  Weight: 79.450 kg

DRUGS (2)
  1. TREMFYA [Suspect]
     Active Substance: GUSELKUMAB
     Indication: Psoriasis
     Route: 003
     Dates: start: 20220711
  2. ATENOLOL [Concomitant]
     Active Substance: ATENOLOL
     Indication: Blood pressure measurement
     Route: 065

REACTIONS (6)
  - Product dose omission issue [Unknown]
  - Device issue [Unknown]
  - Product packaging issue [Unknown]
  - Needle issue [Unknown]
  - Off label use [Unknown]
  - Off label use [Unknown]

NARRATIVE: CASE EVENT DATE: 20220809
